FAERS Safety Report 9735870 (Version 2)
Quarter: 2015Q3

REPORT INFORMATION
  Report Type: Spontaneous
  Country: US (occurrence: US)
  Receive Date: 20131206
  Receipt Date: 20150804
  Transmission Date: 20151125
  Serious: No
  Sender: FDA-Public Use
  Company Number: US-GILEAD-2009-0024176

PATIENT
  Age: 52 Year
  Sex: Male
  Weight: 139.25 kg

DRUGS (15)
  1. FLONASE [Concomitant]
     Active Substance: FLUTICASONE PROPIONATE
  2. LETAIRIS [Suspect]
     Active Substance: AMBRISENTAN
     Indication: PULMONARY ARTERIAL HYPERTENSION
     Route: 048
     Dates: start: 20081030
  3. REVATIO [Concomitant]
     Active Substance: SILDENAFIL CITRATE
  4. PULMICORT TURBUHALER [Concomitant]
     Active Substance: BUDESONIDE
  5. WARFARIN [Concomitant]
     Active Substance: WARFARIN
  6. SPIRIVA [Concomitant]
     Active Substance: TIOTROPIUM BROMIDE MONOHYDRATE
  7. SINGULAIR [Concomitant]
     Active Substance: MONTELUKAST SODIUM
  8. MULTIVITAMIN [Concomitant]
     Active Substance: VITAMINS
  9. THEOPHYLLINE [Concomitant]
     Active Substance: THEOPHYLLINE ANHYDROUS
  10. SEREVENT DISKUS [Concomitant]
     Active Substance: SALMETEROL XINAFOATE
  11. LORATADINE. [Concomitant]
     Active Substance: LORATADINE
  12. LISINOPRIL. [Concomitant]
     Active Substance: LISINOPRIL
  13. DOXEPIN [Concomitant]
     Active Substance: DOXEPIN
  14. FLUOXETINE [Concomitant]
     Active Substance: FLUOXETINE\FLUOXETINE HYDROCHLORIDE
  15. ZYFLO [Concomitant]
     Active Substance: ZILEUTON

REACTIONS (2)
  - Musculoskeletal pain [Unknown]
  - Musculoskeletal chest pain [Unknown]
